FAERS Safety Report 16133860 (Version 1)
Quarter: 2019Q1

REPORT INFORMATION
  Report Type: Spontaneous
  Country: US (occurrence: US)
  Receive Date: 20190329
  Receipt Date: 20190329
  Transmission Date: 20190418
  Serious: Yes (Other)
  Sender: FDA-Public Use
  Company Number: US-TORRENT-00007839

PATIENT
  Sex: Female

DRUGS (1)
  1. LOSARTAN. [Suspect]
     Active Substance: LOSARTAN
     Indication: HYPERTENSION
     Dosage: DAILY
     Dates: start: 20181212, end: 20190205

REACTIONS (4)
  - Bowel movement irregularity [Unknown]
  - Pruritus [Not Recovered/Not Resolved]
  - Haematochezia [Unknown]
  - Flatulence [Unknown]
